FAERS Safety Report 6931514-8 (Version None)
Quarter: 2010Q3

REPORT INFORMATION
  Report Type: 
  Country: None (occurrence: None)
  Receive Date: 20100819
  Receipt Date: 20100805
  Transmission Date: 20110219
  Serious: Yes (Other)
  Sender: FDA-Public Use
  Company Number: PHHY2010US51952

PATIENT
  Sex: Female

DRUGS (1)
  1. EXJADE [Suspect]
     Dosage: 375 MG, QD
     Route: 048

REACTIONS (4)
  - EAR PAIN [None]
  - EYE DISORDER [None]
  - EYE PRURITUS [None]
  - SERUM FERRITIN INCREASED [None]
